FAERS Safety Report 26023793 (Version 1)
Quarter: 2025Q4

REPORT INFORMATION
  Report Type: Spontaneous
  Country: US (occurrence: US)
  Receive Date: 20251111
  Receipt Date: 20251111
  Transmission Date: 20260117
  Serious: Yes (Other)
  Sender: AJANTA PHARMA USA INC
  Company Number: US-AJANTA-2025AJA00148

PATIENT
  Age: 58 Year
  Sex: Female
  Weight: 185 kg

DRUGS (6)
  1. DULOXETINE [Suspect]
     Active Substance: DULOXETINE
     Indication: Depression
     Dates: end: 2025
  2. DULOXETINE [Suspect]
     Active Substance: DULOXETINE
     Indication: Anxiety
     Dates: start: 2025, end: 202509
  3. DULOXETINE [Suspect]
     Active Substance: DULOXETINE
     Indication: Pain
     Dates: start: 202509, end: 202510
  4. PreserVision (Vitamin) [Concomitant]
     Dates: end: 202510
  5. Armour thyroid (Desiccated thyroid) [Concomitant]
     Dates: end: 202510
  6. Armour thyroid (Desiccated thyroid) [Concomitant]
     Dates: start: 202510, end: 202510

REACTIONS (8)
  - Postmenopausal haemorrhage [Unknown]
  - Eye pain [Recovering/Resolving]
  - Visual impairment [Unknown]
  - Nausea [Not Recovered/Not Resolved]
  - Headache [Not Recovered/Not Resolved]
  - Dizziness [Not Recovered/Not Resolved]
  - Malaise [Not Recovered/Not Resolved]
  - Withdrawal syndrome [Not Recovered/Not Resolved]

NARRATIVE: CASE EVENT DATE: 20250101
